FAERS Safety Report 14998670 (Version 7)
Quarter: 2020Q3

REPORT INFORMATION
  Report Type: Report from Study
  Country: US (occurrence: US)
  Receive Date: 20180612
  Receipt Date: 20200829
  Transmission Date: 20201102
  Serious: Yes (Other)
  Sender: FDA-Public Use
  Company Number: PHEH2018US022923

PATIENT
  Age: 60 Year
  Sex: Female

DRUGS (6)
  1. GILENYA [Suspect]
     Active Substance: FINGOLIMOD HYDROCHLORIDE
     Dosage: 0.5 MG, QD
     Route: 048
  2. GILENYA [Suspect]
     Active Substance: FINGOLIMOD HYDROCHLORIDE
     Indication: MULTIPLE SCLEROSIS
     Dosage: 0.5 MG, QD
     Route: 048
     Dates: start: 20180210
  3. GILENYA [Suspect]
     Active Substance: FINGOLIMOD HYDROCHLORIDE
     Dosage: 0.5 MG, QD
     Route: 048
     Dates: start: 20180213
  4. GILENYA [Suspect]
     Active Substance: FINGOLIMOD HYDROCHLORIDE
     Dosage: 0.5 MG, QD
     Route: 048
  5. GILENYA [Suspect]
     Active Substance: FINGOLIMOD HYDROCHLORIDE
     Dosage: 0.5 MG, QD
     Route: 048
     Dates: start: 20180213
  6. GILENYA [Suspect]
     Active Substance: FINGOLIMOD HYDROCHLORIDE
     Dosage: 0.5 MG, QD
     Route: 048

REACTIONS (15)
  - Gait disturbance [Not Recovered/Not Resolved]
  - Infection [Recovered/Resolved]
  - Lyme disease [Not Recovered/Not Resolved]
  - Rash [Not Recovered/Not Resolved]
  - Nasopharyngitis [Unknown]
  - Micturition urgency [Unknown]
  - Osteoporosis [Unknown]
  - Depressed mood [Unknown]
  - Lymphadenopathy [Not Recovered/Not Resolved]
  - Pyrexia [Not Recovered/Not Resolved]
  - Fall [Not Recovered/Not Resolved]
  - Fatigue [Unknown]
  - White blood cell count decreased [Not Recovered/Not Resolved]
  - Burning sensation [Recovered/Resolved]
  - Stress [Unknown]

NARRATIVE: CASE EVENT DATE: 20190301
